FAERS Safety Report 7085277 (Version 1)
Quarter: 2020Q3

REPORT INFORMATION
  Report Type: Report from Study
  Country: AT (occurrence: AT)
  Receive Date: 20060327
  Receipt Date: 20060327
  Transmission Date: 20201104
  Serious: Yes (Hospitalization)
  Sender: FDA-Public Use
  Company Number: 2006PK00549

PATIENT
  Age: 24678 Day
  Sex: Male

DRUGS (2)
  1. FLUOROURACIL\LEUCOVORIN CALCIUM\OXALIPLATIN [Suspect]
     Active Substance: FLUOROURACIL\LEUCOVORIN CALCIUM\OXALIPLATIN
     Indication: COLORECTAL CANCER METASTATIC
  2. CEDIRANIB. [Suspect]
     Active Substance: CEDIRANIB
     Indication: COLORECTAL CANCER METASTATIC
     Route: 048

REACTIONS (1)
  - Vena cava thrombosis [Not Recovered/Not Resolved]

NARRATIVE: CASE EVENT DATE: 20060310
